FAERS Safety Report 8291823-X (Version None)
Quarter: 2012Q2

REPORT INFORMATION
  Report Type: 
  Country: None (occurrence: None)
  Receive Date: 20120417
  Receipt Date: 20120410
  Transmission Date: 20120825
  Serious: Yes (Hospitalization, Other)
  Sender: FDA-Public Use
  Company Number: US-ELI_LILLY_AND_COMPANY-US200908006715

PATIENT
  Sex: Female

DRUGS (26)
  1. FORTEO [Suspect]
     Indication: OSTEOPOROSIS
     Dosage: 20 UG, DAILY (1/D)
     Dates: start: 20100801
  2. GABAPENTIN [Concomitant]
     Dosage: 900 MG, QD
  3. SIMVASTATIN [Concomitant]
  4. VITAMIN B15 [Concomitant]
  5. RAMIPRIL [Concomitant]
     Indication: CARDIAC DISORDER
     Dosage: UNK, BID
  6. CALCIUM W/VITAMIN D NOS [Concomitant]
     Dosage: UNK, BID
  7. FORTEO [Suspect]
     Dosage: 20 UG, DAILY (1/D)
     Dates: start: 20110201
  8. METFORMIN HCL [Concomitant]
     Indication: DIABETES MELLITUS
     Dosage: UNK, BID
  9. HYDROCHLOROTHIAZIDE [Concomitant]
  10. ZELAPAR [Concomitant]
     Dosage: UNK, QD
  11. NORVASC [Concomitant]
     Indication: BLOOD PRESSURE ABNORMAL
     Dosage: UNK, QD
  12. PREVACID [Concomitant]
  13. ZOCOR [Concomitant]
     Dosage: 1 DF, QD
  14. LASIX [Concomitant]
     Dosage: UNK, BID
  15. FORTEO [Suspect]
     Dosage: 20 UG, QD
  16. DIURETICS [Concomitant]
  17. FORTEO [Suspect]
     Dosage: 20 UG, DAILY (1/D)
     Dates: end: 20100922
  18. FORTEO [Suspect]
     Dosage: 20 UG, QD
     Dates: start: 20110801
  19. LEVOTHROID [Concomitant]
     Indication: THYROID DISORDER
  20. ATENOLOL [Concomitant]
  21. CALCIUM CARBONATE [Concomitant]
  22. POTASSIUM CHLORIDE [Concomitant]
     Dosage: UNK, QD
  23. DIGOXIN [Concomitant]
  24. METOPROLOL TARTRATE [Concomitant]
     Dosage: UNK, BID
  25. ASPIRIN [Concomitant]
     Dosage: UNK, QD
  26. SINEMET [Concomitant]
     Indication: PARKINSON'S DISEASE
     Dosage: 0.5 DF, BID

REACTIONS (32)
  - INFECTION [None]
  - HEART VALVE INCOMPETENCE [None]
  - UPPER LIMB FRACTURE [None]
  - MOUTH INJURY [None]
  - WEIGHT DECREASED [None]
  - ATRIAL FIBRILLATION [None]
  - COUGH [None]
  - ANAEMIA [None]
  - PATELLA FRACTURE [None]
  - CORONARY ARTERY OCCLUSION [None]
  - BLOOD ELECTROLYTES DECREASED [None]
  - HAND FRACTURE [None]
  - TOOTH FRACTURE [None]
  - CONTUSION [None]
  - DRY MOUTH [None]
  - FATIGUE [None]
  - BLOOD CALCIUM INCREASED [None]
  - INTENTIONAL DRUG MISUSE [None]
  - BONE PAIN [None]
  - FALL [None]
  - INSOMNIA [None]
  - WALKING AID USER [None]
  - PAIN [None]
  - RIB FRACTURE [None]
  - WRIST FRACTURE [None]
  - PAIN IN EXTREMITY [None]
  - MUSCULOSKELETAL DISCOMFORT [None]
  - INJECTION SITE HAEMATOMA [None]
  - CARDIAC FAILURE CONGESTIVE [None]
  - BLOOD POTASSIUM DECREASED [None]
  - PRODUCT TASTE ABNORMAL [None]
  - NAUSEA [None]
